FAERS Safety Report 21967922 (Version 1)
Quarter: 2023Q1

REPORT INFORMATION
  Report Type: Spontaneous
  Country: CA (occurrence: CA)
  Receive Date: 20230208
  Receipt Date: 20230208
  Transmission Date: 20230418
  Serious: Yes (Death, Other)
  Sender: FDA-Public Use
  Company Number: CA-Covis Pharma GmbH-2023COV00239

PATIENT
  Age: 65 Year
  Sex: Male

DRUGS (1)
  1. RILUTEK [Suspect]
     Active Substance: RILUZOLE
     Indication: Amyotrophic lateral sclerosis
     Dosage: 50 MG TWICE IN A DAY (BID) ORALLY
     Route: 048

REACTIONS (1)
  - Assisted suicide [Fatal]
